FAERS Safety Report 5259055-7 (Version None)
Quarter: 2007Q1

REPORT INFORMATION
  Report Type: 
  Country: None (occurrence: None)
  Receive Date: 20070308
  Receipt Date: 20070226
  Transmission Date: 20070707
  Serious: Yes (Other)
  Sender: FDA-Public Use
  Company Number: US-PFIZER INC-2007016251

PATIENT
  Sex: Female
  Weight: 74.8 kg

DRUGS (7)
  1. CHANTIX [Suspect]
     Indication: EX-SMOKER
  2. SYNTHROID [Concomitant]
  3. VICOPROFEN [Concomitant]
  4. LORAZEPAM [Concomitant]
  5. PREMPRO [Concomitant]
  6. AMITRIPTYLINE HCL [Concomitant]
  7. MONTELUKAST SODIUM [Concomitant]

REACTIONS (3)
  - CONFUSIONAL STATE [None]
  - DIZZINESS [None]
  - SOMNOLENCE [None]
